FAERS Safety Report 4563755-1 (Version None)
Quarter: 2005Q1

REPORT INFORMATION
  Report Type: 
  Country: None (occurrence: None)
  Receive Date: 20050121
  Receipt Date: 20050104
  Transmission Date: 20050727
  Serious: Yes (Hospitalization)
  Sender: FDA-Public Use
  Company Number: USA030332393

PATIENT
  Age: 51 Year
  Sex: Female
  Weight: 48 kg

DRUGS (15)
  1. FORTEO [Suspect]
     Indication: OSTEOPOROSIS
     Dosage: 20 UG DAY
     Dates: start: 20030320
  2. PRILOSEC (OMEPRAZOLE RATIOPHARM) [Concomitant]
  3. OGEN [Concomitant]
  4. VAGIFEM [Concomitant]
  5. CALCIUM GLUCONATE [Concomitant]
  6. VITAMIN D [Concomitant]
  7. MULTI-VITAMIN [Concomitant]
  8. VITAMIN E [Concomitant]
  9. MURO 128 (SODIUM CHLORIDE) [Concomitant]
  10. REGLAN [Concomitant]
  11. ERYTHROMYCIN [Concomitant]
  12. PHENERGAN [Concomitant]
  13. LOPROX (CICLOPIROX OLAMINE) [Concomitant]
  14. VANIQA (EFLORNITHINE HYDROCHLORIDE) [Concomitant]
  15. PREPARATION E [Concomitant]

REACTIONS (11)
  - ABDOMINAL PAIN UPPER [None]
  - CHOLELITHIASIS [None]
  - DRUG INEFFECTIVE [None]
  - FEELING ABNORMAL [None]
  - GALLBLADDER DISORDER [None]
  - GASTROINTESTINAL MOTILITY DISORDER [None]
  - IMPAIRED GASTRIC EMPTYING [None]
  - INJECTION SITE ERYTHEMA [None]
  - INJECTION SITE PAIN [None]
  - PHARMACEUTICAL PRODUCT COMPLAINT [None]
  - VOMITING [None]
